FAERS Safety Report 7582775-6 (Version None)
Quarter: 2011Q2

REPORT INFORMATION
  Report Type: 
  Country: None (occurrence: None)
  Receive Date: 20110627
  Receipt Date: 20110627
  Transmission Date: 20111010
  Serious: No
  Sender: FDA-Public Use
  Company Number: None

PATIENT
  Age: 39 Year
  Sex: Female
  Weight: 73.4827 kg

DRUGS (1)
  1. ENDOMETRIN [Suspect]
     Indication: INFERTILITY
     Dosage: 100MG VAGINAL INSERT ONCE @ BEDTIME
     Route: 067
     Dates: start: 20110622, end: 20110626

REACTIONS (4)
  - ABDOMINAL DISTENSION [None]
  - ABDOMINAL PAIN [None]
  - HEADACHE [None]
  - CONSTIPATION [None]
